FAERS Safety Report 8440224-X (Version None)
Quarter: 2012Q2

REPORT INFORMATION
  Report Type: 
  Country: None (occurrence: None)
  Receive Date: 20120615
  Receipt Date: 20120608
  Transmission Date: 20120825
  Serious: Yes (Hospitalization)
  Sender: FDA-Public Use
  Company Number: TH-GILEAD-2011-0039327

PATIENT
  Age: 30 Year
  Sex: Female

DRUGS (5)
  1. LAMIVUDINE [Concomitant]
     Indication: HIV INFECTION
  2. EFAVIRENZ [Concomitant]
     Indication: HIV INFECTION
     Dates: start: 20110420
  3. EMTRICITABINE/TENOFOVIR DISOPROXIL FUMARATE [Suspect]
     Indication: HIV INFECTION
     Dates: start: 20110420, end: 20110624
  4. LOPINAVIR [Concomitant]
     Indication: HIV INFECTION
  5. ZIDOVUDINE [Concomitant]
     Indication: HIV INFECTION

REACTIONS (2)
  - PREGNANCY [None]
  - PELVIC INFECTION [None]
